FAERS Safety Report 5139993-6 (Version None)
Quarter: 2007Q1

REPORT INFORMATION
  Report Type: 
  Country: None (occurrence: None)
  Receive Date: 20061025
  Receipt Date: 20061011
  Transmission Date: 20070707
  Serious: Yes (Other)
  Sender: FDA-Public Use
  Company Number: 2006123130

PATIENT
  Age: 19 Year
  Sex: Female

DRUGS (8)
  1. CELEBREX [Suspect]
     Indication: OEDEMA PERIPHERAL
     Dosage: 400 MG (200 MG, 2 IN 1 D)
  2. CELEBREX [Suspect]
     Indication: PAIN IN EXTREMITY
     Dosage: 400 MG (200 MG, 2 IN 1 D)
  3. CELEBREX [Suspect]
     Indication: PSORIATIC ARTHROPATHY
     Dosage: 400 MG (200 MG, 2 IN 1 D)
  4. PREDNISONE TAB [Concomitant]
  5. EFFEXOR [Concomitant]
  6. PEPCID [Concomitant]
  7. METHOTREXATE [Concomitant]
  8. FOLIC ACID [Concomitant]

REACTIONS (3)
  - HYPERCOAGULATION [None]
  - POST PROCEDURAL PULMONARY EMBOLISM [None]
  - SYNCOPE [None]
